FAERS Safety Report 9109929 (Version 1)
Quarter: 2013Q1

REPORT INFORMATION
  Report Type: Spontaneous
  Country: TR (occurrence: TR)
  Receive Date: 20130222
  Receipt Date: 20130222
  Transmission Date: 20140127
  Serious: Yes (Death, Other)
  Sender: FDA-Public Use
  Company Number: TR-ELI_LILLY_AND_COMPANY-TR201302004218

PATIENT
  Sex: 0

DRUGS (2)
  1. HUMULIN REGULAR [Suspect]
     Dosage: UNK, UNKNOWN
     Route: 064
  2. HUMULIN NPH [Suspect]
     Dosage: UNK, UNKNOWN
     Route: 064

REACTIONS (3)
  - Death neonatal [Fatal]
  - Premature baby [Unknown]
  - Foetal exposure during pregnancy [Recovered/Resolved]
